FAERS Safety Report 9457801 (Version 2)
Quarter: 2013Q3

REPORT INFORMATION
  Report Type: Report from Study
  Country: AR (occurrence: AR)
  Receive Date: 20130814
  Receipt Date: 20130902
  Transmission Date: 20140515
  Serious: Yes (Other)
  Sender: FDA-Public Use
  Company Number: PHHY2013AR086095

PATIENT
  Sex: Male

DRUGS (1)
  1. ONBREZ [Suspect]
     Indication: CHRONIC OBSTRUCTIVE PULMONARY DISEASE
     Dosage: 150 UG, QD

REACTIONS (5)
  - Bronchiectasis [Recovering/Resolving]
  - Cough [Recovering/Resolving]
  - Increased upper airway secretion [Recovering/Resolving]
  - Pyrexia [Recovering/Resolving]
  - Condition aggravated [Unknown]
